FAERS Safety Report 8082922-6 (Version None)
Quarter: 2012Q1

REPORT INFORMATION
  Report Type: 
  Country: None (occurrence: None)
  Receive Date: 20120127
  Receipt Date: 20110303
  Transmission Date: 20120608
  Serious: No
  Sender: FDA-Public Use
  Company Number: US-ABBOTT-11P-163-0705220-00

PATIENT
  Age: 50 Year
  Sex: Female

DRUGS (8)
  1. METHOTREXATE [Concomitant]
     Indication: RHEUMATOID ARTHRITIS
  2. OLEPTRO [Concomitant]
     Indication: INSOMNIA
  3. CYMBALTA [Concomitant]
     Indication: FIBROMYALGIA
  4. OLEPTRO [Concomitant]
     Indication: DEPRESSION
  5. HUMIRA [Suspect]
     Indication: RHEUMATOID ARTHRITIS
     Dates: start: 20101218
  6. CYMBALTA [Concomitant]
     Indication: DEPRESSION
  7. FOLIC ACID [Concomitant]
     Indication: VITAMIN SUPPLEMENTATION
     Dosage: DAILY
  8. IBUPROFEN [Concomitant]
     Indication: PAIN

REACTIONS (2)
  - VOMITING [None]
  - NAUSEA [None]
